FAERS Safety Report 21663464 (Version 2)
Quarter: 2022Q4

REPORT INFORMATION
  Report Type: Spontaneous
  Country: JP (occurrence: JP)
  Receive Date: 20221130
  Receipt Date: 20221215
  Transmission Date: 20230113
  Serious: Yes (Other)
  Sender: FDA-Public Use
  Company Number: JP-ONO-2022JP010062

PATIENT
  Age: 8 Decade
  Sex: Male

DRUGS (4)
  1. OPDIVO [Suspect]
     Active Substance: NIVOLUMAB
     Indication: Oesophageal carcinoma
     Dosage: 480 MG, Q4W
     Route: 041
  2. OPDIVO [Suspect]
     Active Substance: NIVOLUMAB
     Dosage: 480 MG, Q4W
     Route: 041
     Dates: start: 202202, end: 202203
  3. FLUOROURACIL [Suspect]
     Active Substance: FLUOROURACIL
     Indication: Product used for unknown indication
  4. CISPLATIN [Suspect]
     Active Substance: CISPLATIN
     Indication: Product used for unknown indication

REACTIONS (3)
  - Type 1 diabetes mellitus [Recovered/Resolved]
  - Pneumonia [Unknown]
  - Dumping syndrome [Recovered/Resolved]

NARRATIVE: CASE EVENT DATE: 20220401
